FAERS Safety Report 6763205-0 (Version None)
Quarter: 2010Q2

REPORT INFORMATION
  Report Type: 
  Country: None (occurrence: None)
  Receive Date: 20100609
  Receipt Date: 20100602
  Transmission Date: 20101027
  Serious: Yes (Other)
  Sender: FDA-Public Use
  Company Number: ES-MERCK-1003ESP00015

PATIENT
  Age: 78 Year
  Sex: Female

DRUGS (7)
  1. FOSAMAX PLUS D [Suspect]
     Route: 048
     Dates: start: 20080101, end: 20100101
  2. FOSAMAX [Suspect]
     Route: 065
     Dates: start: 20000101
  3. CHLORTHALIDONE [Concomitant]
     Indication: HYPERTENSION
     Route: 065
  4. DEFLAZACORT [Concomitant]
     Indication: RHEUMATOID ARTHRITIS
     Route: 048
     Dates: start: 19900101
  5. FLUTICASONE PROPIONATE AND SALMETEROL XINAFOATE [Concomitant]
     Indication: ASTHMA
     Route: 055
     Dates: start: 19900101
  6. COZAAR [Concomitant]
     Indication: HYPERTENSION
     Route: 048
     Dates: start: 19900101
  7. TIOTROPIUM BROMIDE [Concomitant]
     Indication: ASTHMA
     Route: 055
     Dates: start: 19900101

REACTIONS (3)
  - FRACTURE DELAYED UNION [None]
  - GROIN PAIN [None]
  - PATHOLOGICAL FRACTURE [None]
